FAERS Safety Report 6742621-7 (Version None)
Quarter: 2010Q2

REPORT INFORMATION
  Report Type: 
  Country: None (occurrence: None)
  Receive Date: 20100526
  Receipt Date: 20100518
  Transmission Date: 20101027
  Serious: Yes (Other)
  Sender: FDA-Public Use
  Company Number: CA-ROCHE-703914

PATIENT
  Age: 72 Year
  Sex: Female
  Weight: 51.3 kg

DRUGS (5)
  1. CELLCEPT [Suspect]
     Indication: DRUG USE FOR UNKNOWN INDICATION
     Dosage: DOSAGE FORM: NOT SPECIFIED
     Route: 048
  2. CELLCEPT [Suspect]
     Route: 048
  3. COZAAR [Concomitant]
  4. HYZAAR [Concomitant]
     Dosage: HYZAAR 50/12.5 MG
  5. METOPROLOL [Concomitant]

REACTIONS (3)
  - CHEST DISCOMFORT [None]
  - NIGHT SWEATS [None]
  - WEIGHT DECREASED [None]
